FAERS Safety Report 6330385-0 (Version None)
Quarter: 2009Q3

REPORT INFORMATION
  Report Type: 
  Country: None (occurrence: None)
  Receive Date: 20090826
  Receipt Date: 20090826
  Transmission Date: 20100115
  Serious: Yes (Life-Threatening, Hospitalization)
  Sender: FDA-Public Use
  Company Number: None

PATIENT
  Sex: Female

DRUGS (1)
  1. INFLIXIMAB [Suspect]
     Indication: BURKITT'S LYMPHOMA

REACTIONS (6)
  - ABDOMINAL DISCOMFORT [None]
  - BURKITT'S LYMPHOMA [None]
  - CONSTIPATION [None]
  - DIARRHOEA [None]
  - DIFFUSE LARGE B-CELL LYMPHOMA [None]
  - NO THERAPEUTIC RESPONSE [None]
